FAERS Safety Report 9128489 (Version 1)
Quarter: 2013Q1

REPORT INFORMATION
  Report Type: Spontaneous
  Country: JP (occurrence: JP)
  Receive Date: 20130228
  Receipt Date: 20130228
  Transmission Date: 20140127
  Serious: Yes (Death)
  Sender: FDA-Public Use
  Company Number: JP-OTSUKA-008702

PATIENT
  Age: 86 Year
  Sex: Male

DRUGS (6)
  1. PLETAAL [Suspect]
     Dosage: 100 MG MILLIGRAM(S), QD
     Route: 048
     Dates: start: 20100121, end: 20100122
  2. AVOLVE [Suspect]
     Indication: BENIGN PROSTATIC HYPERPLASIA
     Dosage: 0.5 MG MILLIGRAM(S), QD
     Route: 048
     Dates: end: 20100122
  3. EVIPROSTAT [Suspect]
     Indication: BENIGN PROSTATIC HYPERPLASIA
     Dosage: UNK, UNK
     Route: 048
     Dates: end: 20100122
  4. NORVASC [Suspect]
     Dosage: 5 MG MILLIGRAM(S), QD
     Route: 048
     Dates: start: 20100121, end: 20100122
  5. PANALDINE [Suspect]
     Dosage: 100 MG MILLIGRAM(S), QD
     Route: 048
     Dates: start: 20100121, end: 20100122
  6. SULBACTAM [Suspect]

REACTIONS (3)
  - Cardio-respiratory arrest [Fatal]
  - Blood pressure decreased [Fatal]
  - Medication error [Unknown]
